FAERS Safety Report 7522956-0 (Version None)
Quarter: 2011Q2

REPORT INFORMATION
  Report Type: 
  Country: None (occurrence: None)
  Receive Date: 20110603
  Receipt Date: 20110523
  Transmission Date: 20111010
  Serious: Yes (Hospitalization)
  Sender: FDA-Public Use
  Company Number: US-BRISTOL-MYERS SQUIBB COMPANY-15769102

PATIENT
  Age: 57 Year
  Sex: Female

DRUGS (3)
  1. EPHEDRA [Suspect]
  2. CYANOCOBALAMIN [Suspect]
  3. SYNEPHRINE [Suspect]

REACTIONS (3)
  - LOSS OF CONSCIOUSNESS [None]
  - INTENTIONAL OVERDOSE [None]
  - ACUTE HEPATIC FAILURE [None]
